FAERS Safety Report 13408927 (Version 3)
Quarter: 2017Q2

REPORT INFORMATION
  Report Type: Spontaneous
  Country: US (occurrence: US)
  Receive Date: 20170406
  Receipt Date: 20170630
  Transmission Date: 20170830
  Serious: No
  Sender: FDA-Public Use
  Company Number: US-JNJFOC-20161016260

PATIENT
  Age: 7 Year
  Sex: Male

DRUGS (11)
  1. RISPERIDONE. [Suspect]
     Active Substance: RISPERIDONE
     Indication: ADJUSTMENT DISORDER
     Route: 048
     Dates: start: 20100316, end: 20101018
  2. RISPERIDONE. [Suspect]
     Active Substance: RISPERIDONE
     Indication: ADJUSTMENT DISORDER
     Route: 048
     Dates: start: 20021213, end: 20090720
  3. RISPERIDONE. [Suspect]
     Active Substance: RISPERIDONE
     Indication: ATTENTION DEFICIT/HYPERACTIVITY DISORDER
     Route: 048
     Dates: start: 20021213, end: 20090720
  4. RISPERDAL [Suspect]
     Active Substance: RISPERIDONE
     Indication: ADJUSTMENT DISORDER
     Route: 048
     Dates: start: 2009, end: 20090720
  5. RISPERIDONE. [Suspect]
     Active Substance: RISPERIDONE
     Indication: PRODUCT USED FOR UNKNOWN INDICATION
     Route: 048
  6. RISPERDAL [Suspect]
     Active Substance: RISPERIDONE
     Indication: ADJUSTMENT DISORDER
     Route: 048
     Dates: start: 20100316, end: 20101018
  7. RISPERDAL [Suspect]
     Active Substance: RISPERIDONE
     Indication: ATTENTION DEFICIT/HYPERACTIVITY DISORDER
     Route: 048
     Dates: start: 20021213, end: 20090313
  8. RISPERDAL [Suspect]
     Active Substance: RISPERIDONE
     Indication: ATTENTION DEFICIT/HYPERACTIVITY DISORDER
     Route: 048
     Dates: start: 20100316, end: 20101018
  9. RISPERDAL [Suspect]
     Active Substance: RISPERIDONE
     Indication: ADJUSTMENT DISORDER
     Route: 048
     Dates: start: 20021213, end: 20090313
  10. RISPERDAL [Suspect]
     Active Substance: RISPERIDONE
     Indication: ATTENTION DEFICIT/HYPERACTIVITY DISORDER
     Route: 048
     Dates: start: 2009, end: 20090720
  11. RISPERIDONE. [Suspect]
     Active Substance: RISPERIDONE
     Indication: ATTENTION DEFICIT/HYPERACTIVITY DISORDER
     Route: 048
     Dates: start: 20100316, end: 20101018

REACTIONS (6)
  - Overweight [Unknown]
  - Fatigue [Unknown]
  - Product use in unapproved indication [Unknown]
  - Off label use [Unknown]
  - Gynaecomastia [Unknown]
  - Emotional distress [Unknown]

NARRATIVE: CASE EVENT DATE: 20021213
